FAERS Safety Report 12980201 (Version 2)
Quarter: 2017Q1

REPORT INFORMATION
  Report Type: Report from Study
  Country: US (occurrence: US)
  Receive Date: 20161128
  Receipt Date: 20170207
  Transmission Date: 20170428
  Serious: Yes (Death, Hospitalization, Other)
  Sender: FDA-Public Use
  Company Number: US-EISAI MEDICAL RESEARCH-EC-2016-019822

PATIENT
  Age: 52 Year
  Sex: Male
  Weight: 111 kg

DRUGS (18)
  1. LENVIMA [Suspect]
     Active Substance: LENVATINIB
     Indication: RENAL CANCER
     Route: 048
     Dates: start: 20160722, end: 20160905
  2. AFINITOR [Suspect]
     Active Substance: EVEROLIMUS
     Indication: PRODUCT USED FOR UNKNOWN INDICATION
     Route: 048
     Dates: end: 201609
  3. DEXAMETHASONE. [Concomitant]
     Active Substance: DEXAMETHASONE
  4. VITAMIN C [Concomitant]
     Active Substance: ASCORBIC ACID
  5. NYSTATIN. [Concomitant]
     Active Substance: NYSTATIN
  6. LISINOPRIL. [Concomitant]
     Active Substance: LISINOPRIL
  7. ARIXTRA [Concomitant]
     Active Substance: FONDAPARINUX SODIUM
  8. BENADRYL [Concomitant]
     Active Substance: DIPHENHYDRAMINE HYDROCHLORIDE
  9. CALCIUM [Concomitant]
     Active Substance: CALCIUM
  10. LENVIMA [Suspect]
     Active Substance: LENVATINIB
     Dosage: UNKNOWN
     Route: 048
     Dates: start: 201609, end: 2016
  11. DOCUSATE SODIUM. [Concomitant]
     Active Substance: DOCUSATE SODIUM
  12. LORATADINE. [Concomitant]
     Active Substance: LORATADINE
  13. NORVASC [Concomitant]
     Active Substance: AMLODIPINE BESYLATE
  14. VITAMIN B12 [Concomitant]
     Active Substance: CYANOCOBALAMIN
  15. LENVIMA [Suspect]
     Active Substance: LENVATINIB
     Route: 048
     Dates: start: 2016, end: 201611
  16. FAMOTIDINE. [Concomitant]
     Active Substance: FAMOTIDINE
  17. PEPCID [Concomitant]
     Active Substance: FAMOTIDINE
  18. IRON [Concomitant]
     Active Substance: IRON

REACTIONS (13)
  - Rash [Recovered/Resolved]
  - Ulcer haemorrhage [Unknown]
  - Dehydration [Recovered/Resolved]
  - Death [Fatal]
  - Gastroenteritis viral [Recovered/Resolved]
  - Seizure [Recovered/Resolved]
  - Fatigue [Not Recovered/Not Resolved]
  - Sepsis [Recovered/Resolved]
  - Loss of consciousness [Unknown]
  - Dry skin [Not Recovered/Not Resolved]
  - Diarrhoea [Unknown]
  - Hypertension [Recovered/Resolved]
  - Asthenia [Not Recovered/Not Resolved]

NARRATIVE: CASE EVENT DATE: 2016
